FAERS Safety Report 6055577-X (Version None)
Quarter: 2009Q1

REPORT INFORMATION
  Report Type: 
  Country: None (occurrence: None)
  Receive Date: 20090128
  Receipt Date: 20090116
  Transmission Date: 20090719
  Serious: Yes (Hospitalization, Other)
  Sender: FDA-Public Use
  Company Number: FR-JNJFOC-20080804521

PATIENT
  Age: 23 Year
  Sex: Male
  Weight: 73 kg

DRUGS (5)
  1. REMICADE [Suspect]
     Indication: CROHN'S DISEASE
     Dosage: 3 INFUSIONS ON UNSPECIFIED DATES
     Route: 042
  2. LAROXYL [Concomitant]
     Indication: DEPRESSION
  3. PRAZEPAM [Concomitant]
     Indication: DEPRESSION
  4. STILNOX [Concomitant]
     Indication: DEPRESSION
  5. RAMIPLEX [Concomitant]
     Indication: GASTROOESOPHAGEAL REFLUX DISEASE

REACTIONS (1)
  - BLINDNESS TRANSIENT [None]
